FAERS Safety Report 9819031 (Version 9)
Quarter: 2014Q4

REPORT INFORMATION
  Report Type: Spontaneous
  Country: None (occurrence: US)
  Receive Date: 20140115
  Receipt Date: 20141211
  Transmission Date: 20150529
  Serious: Yes (Hospitalization)
  Sender: FDA-Public Use
  Company Number: US-ALLERGAN-1400521US

PATIENT
  Age: 3 Year
  Sex: Male
  Weight: 17.3 kg

DRUGS (5)
  1. CO-ENZYME Q-10 [Concomitant]
     Indication: NUTRITIONAL SUPPLEMENTATION
     Dosage: UNK, BID
     Route: 048
  2. BOTOX [Suspect]
     Active Substance: ONABOTULINUMTOXINA
     Indication: SALIVARY HYPERSECRETION
     Dosage: 50 UNITS, SINGLE
     Route: 030
     Dates: start: 20120910, end: 20120910
  3. PREVACID [Concomitant]
     Active Substance: LANSOPRAZOLE
     Indication: GASTROOESOPHAGEAL REFLUX DISEASE
     Dosage: 30 MG, UNK
     Route: 048
     Dates: start: 2011
  4. L-CARNITINE [Concomitant]
     Active Substance: CARNITINE
     Indication: NUTRITIONAL SUPPLEMENTATION
     Dosage: 50 MG, UNK
     Route: 048
     Dates: start: 2011
  5. VIT B 50 [Concomitant]
     Indication: NUTRITIONAL SUPPLEMENTATION

REACTIONS (11)
  - Asthenia [Recovering/Resolving]
  - Dysphonia [Unknown]
  - Dysphagia [Recovering/Resolving]
  - Off label use [Unknown]
  - Dysphonia [Recovering/Resolving]
  - Vocal cord paralysis [Recovered/Resolved]
  - Respiratory disorder [Recovered/Resolved]
  - Abnormal behaviour [Not Recovered/Not Resolved]
  - Cardiac disorder [Not Recovered/Not Resolved]
  - Dyspnoea [Unknown]
  - Botulism [Recovered/Resolved]

NARRATIVE: CASE EVENT DATE: 20120912
